FAERS Safety Report 23393480 (Version 1)
Quarter: 2024Q1

REPORT INFORMATION
  Report Type: Spontaneous
  Country: IT (occurrence: IT)
  Receive Date: 20240111
  Receipt Date: 20240111
  Transmission Date: 20240410
  Serious: Yes (Other)
  Sender: FDA-Public Use
  Company Number: None

PATIENT
  Age: 57 Year
  Sex: Male
  Weight: 75 kg

DRUGS (1)
  1. INFLIXIMAB [Suspect]
     Active Substance: INFLIXIMAB
     Indication: Colitis ulcerative
     Dosage: 5 MG/KG EVERY 8 WEEKS
     Route: 042
     Dates: start: 202211, end: 20230411

REACTIONS (1)
  - Sarcoidosis of lymph node [Not Recovered/Not Resolved]

NARRATIVE: CASE EVENT DATE: 20230401
